FAERS Safety Report 4560148-8 (Version None)
Quarter: 2005Q1

REPORT INFORMATION
  Report Type: 
  Country: None (occurrence: None)
  Receive Date: 20050125
  Receipt Date: 20050117
  Transmission Date: 20050727
  Serious: Yes (Life-Threatening, Hospitalization)
  Sender: FDA-Public Use
  Company Number: PHBS2005GB01164

PATIENT
  Age: 71 Year
  Sex: Male

DRUGS (1)
  1. CARTEOLOL HCL [Suspect]
     Indication: GLAUCOMA

REACTIONS (11)
  - ANKLE BRACHIAL INDEX DECREASED [None]
  - BLOOD PRESSURE IMMEASURABLE [None]
  - BRAIN OEDEMA [None]
  - CEREBRAL HAEMORRHAGE [None]
  - COLD SWEAT [None]
  - DIZZINESS [None]
  - HAEMORRHAGIC STROKE [None]
  - HEMIPLEGIA [None]
  - LOSS OF CONSCIOUSNESS [None]
  - ORTHOSTATIC HYPOTENSION [None]
  - PALLOR [None]
